FAERS Safety Report 7679158-7 (Version None)
Quarter: 2011Q3

REPORT INFORMATION
  Report Type: 
  Country: None (occurrence: None)
  Receive Date: 20110812
  Receipt Date: 20110216
  Transmission Date: 20111222
  Serious: Yes (Other)
  Sender: FDA-Public Use
  Company Number: JP-BAYER-2011-015822

PATIENT
  Age: 69 Year
  Sex: Male

DRUGS (2)
  1. NEXAVAR [Suspect]
     Indication: HEPATIC NEOPLASM MALIGNANT
     Dosage: 400 MG, QD
     Route: 048
     Dates: start: 20091021
  2. NEXAVAR [Suspect]
     Route: 048

REACTIONS (2)
  - GASTROINTESTINAL OEDEMA [None]
  - DIARRHOEA [None]
